FAERS Safety Report 8094951-7 (Version None)
Quarter: 2012Q1

REPORT INFORMATION
  Report Type: 
  Country: None (occurrence: None)
  Receive Date: 20120131
  Receipt Date: 20111219
  Transmission Date: 20120608
  Serious: No
  Sender: FDA-Public Use
  Company Number: US-ABBOTT-11P-163-0884150-00

PATIENT
  Age: 1 Month
  Sex: Female

DRUGS (1)
  1. CREON [Suspect]
     Indication: POOR WEIGHT GAIN NEONATAL
     Dates: start: 20111216

REACTIONS (2)
  - ABNORMAL FAECES [None]
  - STEATORRHOEA [None]
